FAERS Safety Report 15185399 (Version 1)
Quarter: 2018Q3

REPORT INFORMATION
  Report Type: Spontaneous
  Country: US (occurrence: US)
  Receive Date: 20180723
  Receipt Date: 20180723
  Transmission Date: 20181010
  Serious: No
  Sender: FDA-Public Use
  Company Number: US-BAUSCH-BL-2018-013480

PATIENT
  Age: 63 Year
  Sex: Female
  Weight: 47.67 kg

DRUGS (1)
  1. LACRISERT [Suspect]
     Active Substance: HYDROXYPROPYL CELLULOSE
     Indication: DRY EYE
     Dosage: 1 UNITS/GRAM?ONCE DAILY IN EACH EYE
     Route: 031
     Dates: start: 201804, end: 201804

REACTIONS (4)
  - Visual impairment [Not Recovered/Not Resolved]
  - Eye discharge [Unknown]
  - Vision blurred [Not Recovered/Not Resolved]
  - Eyelid oedema [Unknown]

NARRATIVE: CASE EVENT DATE: 201804
